FAERS Safety Report 24277367 (Version 3)
Quarter: 2025Q4

REPORT INFORMATION
  Report Type: Report from Study
  Country: US (occurrence: US)
  Receive Date: 20240903
  Receipt Date: 20251005
  Transmission Date: 20260118
  Serious: Yes (Hospitalization, Other)
  Sender: SANOFI AVENTIS
  Company Number: US-SA-2024SA255012

PATIENT
  Age: 84 Year
  Sex: Female

DRUGS (30)
  1. DUPILUMAB [Suspect]
     Active Substance: DUPILUMAB
     Indication: Asthma
     Dosage: 300 MG, QOW
     Route: 058
     Dates: start: 20220809
  2. AMLODIPINE [Concomitant]
     Active Substance: AMLODIPINE BESYLATE
  3. CETIRIZINE [Concomitant]
     Active Substance: CETIRIZINE HYDROCHLORIDE
  4. CETIRIZINE [Concomitant]
     Active Substance: CETIRIZINE HYDROCHLORIDE
  5. CLONIDINE [Concomitant]
     Active Substance: CLONIDINE
  6. ELIQUIS [Concomitant]
     Active Substance: APIXABAN
  7. ELIQUIS [Concomitant]
     Active Substance: APIXABAN
  8. FLONASE [Concomitant]
     Active Substance: FLUTICASONE PROPIONATE
  9. FLONASE [Concomitant]
     Active Substance: FLUTICASONE PROPIONATE
  10. IPRATROPIUM [Concomitant]
     Active Substance: IPRATROPIUM
  11. LOSARTAN [Concomitant]
     Active Substance: LOSARTAN
  12. LOSARTAN [Concomitant]
     Active Substance: LOSARTAN
  13. METOPROLOL [Concomitant]
     Active Substance: METOPROLOL
  14. ASMANEX [Concomitant]
     Active Substance: MOMETASONE FUROATE
  15. MONTELUKAST [Concomitant]
     Active Substance: MONTELUKAST
  16. OMEPRAZOLE [Concomitant]
     Active Substance: OMEPRAZOLE
  17. OMEPRAZOLE [Concomitant]
     Active Substance: OMEPRAZOLE
  18. OMEPRAZOLE [Concomitant]
     Active Substance: OMEPRAZOLE
  19. SIMVASTATIN [Concomitant]
     Active Substance: SIMVASTATIN
  20. TOPROL XL [Concomitant]
     Active Substance: METOPROLOL SUCCINATE
  21. TORSEMIDE [Concomitant]
     Active Substance: TORSEMIDE
  22. VALSARTAN [Concomitant]
     Active Substance: VALSARTAN
  23. WIXELA INHUB [Concomitant]
     Active Substance: FLUTICASONE PROPIONATE\SALMETEROL XINAFOATE
  24. WIXELA INHUB [Concomitant]
     Active Substance: FLUTICASONE PROPIONATE\SALMETEROL XINAFOATE
  25. ZOCOR [Concomitant]
     Active Substance: SIMVASTATIN
  26. TOPROL XL [Concomitant]
     Active Substance: METOPROLOL SUCCINATE
  27. TOPROL XL [Concomitant]
     Active Substance: METOPROLOL SUCCINATE
  28. SPIRONOLACTONE [Concomitant]
     Active Substance: SPIRONOLACTONE
  29. NIFEDIPINE [Concomitant]
     Active Substance: NIFEDIPINE
  30. MOMETASONE FUROATE [Concomitant]
     Active Substance: MOMETASONE FUROATE

REACTIONS (4)
  - Pneumonia [Unknown]
  - Pericardial effusion [Unknown]
  - Implantable defibrillator insertion [Unknown]
  - Dyspnoea [Unknown]

NARRATIVE: CASE EVENT DATE: 20240801
